FAERS Safety Report 4994581-7 (Version None)
Quarter: 2006Q2

REPORT INFORMATION
  Report Type: 
  Country: None (occurrence: None)
  Receive Date: 20060505
  Receipt Date: 20050930
  Transmission Date: 20061013
  Serious: Yes (Hospitalization, Other)
  Sender: FDA-Public Use
  Company Number: US-MERCK-0510USA01190

PATIENT
  Age: 50 Year
  Sex: Male
  Weight: 82 kg

DRUGS (5)
  1. VIOXX [Suspect]
     Indication: ARTHRITIS
     Route: 048
     Dates: start: 20010101, end: 20040101
  2. VIOXX [Suspect]
     Route: 048
     Dates: start: 20040224, end: 20041006
  3. VIOXX [Suspect]
     Route: 048
     Dates: end: 20020201
  4. LORCET-HD [Concomitant]
     Route: 065
  5. ELAVIL [Concomitant]
     Route: 048

REACTIONS (9)
  - ACUTE MYOCARDIAL INFARCTION [None]
  - CARDIAC FAILURE CONGESTIVE [None]
  - CONDYLOMA ACUMINATUM [None]
  - CORONARY ARTERY DISEASE [None]
  - COUGH [None]
  - HYPERTENSION [None]
  - MAJOR DEPRESSION [None]
  - RESPIRATORY FAILURE [None]
  - SKIN ULCER [None]
